FAERS Safety Report 4391070-8 (Version None)
Quarter: 2004Q2

REPORT INFORMATION
  Report Type: 
  Country: None (occurrence: None)
  Receive Date: 20040621
  Receipt Date: 20031014
  Transmission Date: 20050107
  Serious: Yes (Other)
  Sender: FDA-Public Use
  Company Number: USA-2003-0006307

PATIENT
  Age: 42 Year
  Sex: Male
  Weight: 100.7 kg

DRUGS (7)
  1. OXYCONTIN [Suspect]
     Indication: PAIN
     Dosage: 10 MG, HS, ORAL
     Route: 048
     Dates: start: 20010503
  2. FIORICET [Concomitant]
  3. CELEBREX [Concomitant]
  4. NEURONTIN [Concomitant]
  5. DARVOCET-N 100 [Concomitant]
  6. NAPROSYN [Concomitant]
  7. NEXIUM [Concomitant]

REACTIONS (18)
  - ANXIETY [None]
  - CHEST PAIN [None]
  - DEPRESSION [None]
  - DRUG DEPENDENCE [None]
  - DRUG INEFFECTIVE [None]
  - DRUG TOLERANCE [None]
  - DRUG WITHDRAWAL SYNDROME [None]
  - GASTROOESOPHAGEAL REFLUX DISEASE [None]
  - HEADACHE [None]
  - HERPES ZOSTER [None]
  - HYPERHIDROSIS [None]
  - HYPOAESTHESIA [None]
  - INSOMNIA [None]
  - NAUSEA [None]
  - PAIN [None]
  - RASH [None]
  - SEDATION [None]
  - SOMNOLENCE [None]
